FAERS Safety Report 10185907 (Version 2)
Quarter: 2014Q2

REPORT INFORMATION
  Report Type: Report from Study
  Country: US (occurrence: US)
  Receive Date: 20140521
  Receipt Date: 20140521
  Transmission Date: 20141212
  Serious: Yes (Death)
  Sender: FDA-Public Use
  Company Number: US-ACTELION-A-NJ2014-97822

PATIENT
  Age: 70 Year
  Sex: Male

DRUGS (2)
  1. VELETRI [Suspect]
     Indication: PULMONARY ARTERIAL HYPERTENSION
     Dosage: 8 NG/KG, PRN
     Route: 042
     Dates: start: 20140403
  2. WARFARIN [Concomitant]

REACTIONS (12)
  - Death [Fatal]
  - Nausea [Unknown]
  - Epistaxis [Unknown]
  - Nasal dryness [Unknown]
  - Decubitus ulcer [Unknown]
  - Diarrhoea [Unknown]
  - Dyspnoea [Unknown]
  - Abdominal discomfort [Unknown]
  - Anxiety [Unknown]
  - Lethargy [Unknown]
  - Condition aggravated [Unknown]
  - Decreased appetite [Unknown]
